FAERS Safety Report 19959752 (Version 1)
Quarter: 2021Q4

REPORT INFORMATION
  Report Type: Spontaneous
  Country: US (occurrence: US)
  Receive Date: 20211014
  Receipt Date: 20211014
  Transmission Date: 20220303
  Serious: Yes (Other)
  Sender: FDA-Public Use
  Company Number: None

PATIENT
  Age: 3 Month
  Sex: Female
  Weight: 4.46 kg

DRUGS (2)
  1. DEVICE [Suspect]
     Active Substance: DEVICE
  2. TPN [Suspect]
     Active Substance: AMINO ACIDS\DEXTROSE\ELECTROLYTES NOS\SOYBEAN OIL

REACTIONS (3)
  - Seizure [None]
  - Device malfunction [None]
  - Device infusion issue [None]

NARRATIVE: CASE EVENT DATE: 20211012
